FAERS Safety Report 6405308-6 (Version None)
Quarter: 2009Q4

REPORT INFORMATION
  Report Type: 
  Country: None (occurrence: None)
  Receive Date: 20091019
  Receipt Date: 20091016
  Transmission Date: 20100525
  Serious: Yes (Other)
  Sender: FDA-Public Use
  Company Number: AU-B.I. PHARMACEUTICALS,INC./RIDGEFIELD-2009-AU-00610AU

PATIENT
  Age: 70 Decade
  Sex: Female

DRUGS (1)
  1. MICARDIS [Suspect]
     Dosage: 60 MG

REACTIONS (1)
  - CEREBROVASCULAR ACCIDENT [None]
